FAERS Safety Report 6140436-4 (Version None)
Quarter: 2009Q1

REPORT INFORMATION
  Report Type: 
  Country: None (occurrence: None)
  Receive Date: 20090331
  Receipt Date: 20090319
  Transmission Date: 20090719
  Serious: Yes (Hospitalization)
  Sender: FDA-Public Use
  Company Number: US-2009-00093

PATIENT
  Age: 51 Year
  Sex: Female

DRUGS (10)
  1. CEFUROXIME AXETIL [Suspect]
  2. PREDNISONE [Concomitant]
  3. HYDROXYCHLOROQUINE [Concomitant]
  4. PANTOPRAZOLE SODIUM [Concomitant]
  5. ATENOLOL [Concomitant]
  6. DILTIAZEM [Concomitant]
  7. SPIRONOLACTONE [Concomitant]
  8. ETHACRYNIC ACID [Concomitant]
  9. AMLODIPINE [Concomitant]
  10. OXYCODONE HCL [Concomitant]

REACTIONS (11)
  - BLOOD PRESSURE SYSTOLIC INCREASED [None]
  - COMPLEMENT FACTOR C3 DECREASED [None]
  - COMPLEMENT FACTOR C4 DECREASED [None]
  - GLOMERULONEPHRITIS MEMBRANOUS [None]
  - HAEMOGLOBIN DECREASED [None]
  - KIDNEY FIBROSIS [None]
  - NEPHROSCLEROSIS [None]
  - PROTEINURIA [None]
  - RED BLOOD CELL SEDIMENTATION RATE INCREASED [None]
  - RENAL FAILURE ACUTE [None]
  - RENAL TUBULAR ATROPHY [None]
